FAERS Safety Report 5999288-5 (Version None)
Quarter: 2008Q4

REPORT INFORMATION
  Report Type: 
  Country: None (occurrence: None)
  Receive Date: 20081215
  Receipt Date: 20081210
  Transmission Date: 20090506
  Serious: Yes (Death, Life-Threatening, Hospitalization, Other)
  Sender: FDA-Public Use
  Company Number: FR-BRISTOL-MYERS SQUIBB COMPANY-14439616

PATIENT
  Age: 79 Year
  Sex: Female

DRUGS (5)
  1. IRBESARTAN AND HYDROCHLOROTHIAZIDE [Suspect]
     Dates: end: 20081022
  2. ALDACTONE [Suspect]
  3. LASIX [Suspect]
  4. DILTIAZEM HCL [Suspect]
  5. FENOFIBRATE [Concomitant]

REACTIONS (8)
  - BRADYCARDIA [None]
  - DIARRHOEA [None]
  - HYPERKALAEMIA [None]
  - HYPONATRAEMIA [None]
  - RENAL FAILURE ACUTE [None]
  - SEPTIC SHOCK [None]
  - SINOATRIAL BLOCK [None]
  - URINARY TRACT INFECTION [None]
